FAERS Safety Report 4602095-9 (Version None)
Quarter: 2005Q1

REPORT INFORMATION
  Report Type: 
  Country: None (occurrence: None)
  Receive Date: 20050131
  Receipt Date: 20041229
  Transmission Date: 20050727
  Serious: No
  Sender: FDA-Public Use
  Company Number: 200417693US

PATIENT
  Age: 38 Year
  Sex: Female
  Weight: 54.5 kg

DRUGS (5)
  1. KETEK [Suspect]
     Indication: ACUTE SINUSITIS
     Dosage: 800 MG QD PO
     Route: 048
     Dates: start: 20040928
  2. AMLODIPINE [Concomitant]
  3. BENAZEPRIL HYDROCHLORIDE (LOTREL) [Concomitant]
  4. DEPAKOTE [Concomitant]
  5. FLUTICASONE PROPIONATE (FLONASE) [Concomitant]

REACTIONS (2)
  - ACCOMMODATION DISORDER [None]
  - VISION BLURRED [None]
